FAERS Safety Report 16802709 (Version 1)
Quarter: 2019Q3

REPORT INFORMATION
  Report Type: Spontaneous
  Country: PT (occurrence: PT)
  Receive Date: 20190912
  Receipt Date: 20190912
  Transmission Date: 20191005
  Serious: Yes (Death, Other)
  Sender: FDA-Public Use
  Company Number: PT-CELLTRION INC.-2019PT024734

PATIENT

DRUGS (1)
  1. RITUXIMAB (UNKNOWN) [Suspect]
     Active Substance: RITUXIMAB
     Indication: CASTLEMAN^S DISEASE
     Dosage: UNK
     Route: 065

REACTIONS (14)
  - Pneumonia [Fatal]
  - Adrenal cortex necrosis [Fatal]
  - Product use in unapproved indication [Fatal]
  - Human herpes virus 8 test positive [Fatal]
  - Pyrexia [Fatal]
  - Renal tubular necrosis [Fatal]
  - Jaundice [Fatal]
  - Castleman^s disease [Fatal]
  - Pneumonia pneumococcal [Fatal]
  - Lymphadenopathy [Fatal]
  - Splenomegaly [Fatal]
  - Cough [Fatal]
  - Hepatic function abnormal [Fatal]
  - Sepsis [Fatal]
